FAERS Safety Report 18633789 (Version 1)
Quarter: 2020Q4

REPORT INFORMATION
  Report Type: Spontaneous
  Country: US (occurrence: US)
  Receive Date: 20201218
  Receipt Date: 20201218
  Transmission Date: 20210114
  Serious: Yes (Hospitalization)
  Sender: FDA-Public Use
  Company Number: None

PATIENT
  Age: 46 Year
  Sex: Female
  Weight: 63.5 kg

DRUGS (1)
  1. GADAVIST [Suspect]
     Active Substance: GADOBUTROL
     Indication: BREAST CANCER
     Dosage: ?          OTHER FREQUENCY:ONCE FOR CONTRAST;?
     Route: 042
     Dates: start: 20201216

REACTIONS (4)
  - Urticaria [None]
  - Nervousness [None]
  - Pruritus [None]
  - Lethargy [None]

NARRATIVE: CASE EVENT DATE: 20201216
